FAERS Safety Report 19541030 (Version 2)
Quarter: 2021Q3

REPORT INFORMATION
  Report Type: Spontaneous
  Country: US (occurrence: US)
  Receive Date: 20210713
  Receipt Date: 20210826
  Transmission Date: 20211014
  Serious: No
  Sender: FDA-Public Use
  Company Number: US-PFIZER INC-2021703630

PATIENT
  Age: 9 Year
  Sex: Male
  Weight: 36.28 kg

DRUGS (2)
  1. GENOTROPIN [Suspect]
     Active Substance: SOMATROPIN
     Indication: GLUCOCORTICOID DEFICIENCY
     Dosage: 1.6 MG, 1X/DAY
  2. GENOTROPIN [Suspect]
     Active Substance: SOMATROPIN
     Indication: BONE DISORDER

REACTIONS (7)
  - Device breakage [Unknown]
  - Lack of injection site rotation [Unknown]
  - Off label use [Unknown]
  - Poor quality device used [Unknown]
  - Injection site pain [Unknown]
  - Device mechanical issue [Unknown]
  - Device use error [Unknown]
